FAERS Safety Report 8246172-2 (Version None)
Quarter: 2012Q1

REPORT INFORMATION
  Report Type: 
  Country: None (occurrence: None)
  Receive Date: 20120330
  Receipt Date: 20120322
  Transmission Date: 20120608
  Serious: Yes (Other)
  Sender: FDA-Public Use
  Company Number: PHHY2012DE025872

PATIENT
  Sex: Female

DRUGS (2)
  1. GLEEVEC [Suspect]
     Indication: CHRONIC MYELOID LEUKAEMIA
     Dosage: UNK UKN, UNK
     Dates: start: 20020101, end: 20020101
  2. GLEEVEC [Suspect]
     Dosage: UNK UKN, UNK
     Dates: start: 20030101, end: 20090101

REACTIONS (7)
  - HYPERTHYROIDISM [None]
  - NAUSEA [None]
  - OEDEMA [None]
  - MIGRAINE [None]
  - GASTROINTESTINAL DISORDER [None]
  - BLOOD STEM CELL TRANSPLANT FAILURE [None]
  - HYPOTHYROIDISM [None]
